FAERS Safety Report 24982812 (Version 2)
Quarter: 2025Q1

REPORT INFORMATION
  Report Type: Spontaneous
  Country: IL (occurrence: IL)
  Receive Date: 20250218
  Receipt Date: 20250310
  Transmission Date: 20250408
  Serious: Yes (Death, Other)
  Sender: VERTEX
  Company Number: IL-VERTEX PHARMACEUTICALS-2025-002450

PATIENT
  Age: 35 Year
  Sex: Male

DRUGS (15)
  1. TRIKAFTA [Suspect]
     Active Substance: ELEXACAFTOR\IVACAFTOR\TEZACAFTOR
     Indication: Cystic fibrosis
     Route: 048
     Dates: start: 20240301, end: 202404
  2. TRIKAFTA [Suspect]
     Active Substance: ELEXACAFTOR\IVACAFTOR\TEZACAFTOR
     Route: 048
     Dates: start: 202404, end: 202408
  3. CARBOPLATIN [Concomitant]
     Active Substance: CARBOPLATIN
     Indication: Metastases to bone
  4. CARBOPLATIN [Concomitant]
     Active Substance: CARBOPLATIN
     Indication: Metastases to liver
  5. CARBOPLATIN [Concomitant]
     Active Substance: CARBOPLATIN
     Indication: Small cell lung cancer
  6. PACLITAXEL [Concomitant]
     Active Substance: PACLITAXEL
     Indication: Metastases to bone
  7. PACLITAXEL [Concomitant]
     Active Substance: PACLITAXEL
     Indication: Metastases to liver
  8. PACLITAXEL [Concomitant]
     Active Substance: PACLITAXEL
     Indication: Small cell lung cancer
  9. ALECTINIB [Concomitant]
     Active Substance: ALECTINIB
     Indication: Metastases to bone
  10. ALECTINIB [Concomitant]
     Active Substance: ALECTINIB
     Indication: Metastases to liver
  11. ALECTINIB [Concomitant]
     Active Substance: ALECTINIB
     Indication: Small cell lung cancer
  12. OXYGEN [Concomitant]
     Active Substance: OXYGEN
  13. OXYGEN [Concomitant]
     Active Substance: OXYGEN
     Dates: start: 202405
  14. SODIUM CHLORIDE [Concomitant]
     Active Substance: SODIUM CHLORIDE
     Indication: Infective pulmonary exacerbation of cystic fibrosis
  15. DORNASE ALFA [Concomitant]
     Active Substance: DORNASE ALFA
     Indication: Infective pulmonary exacerbation of cystic fibrosis

REACTIONS (5)
  - Metastases to bone [Fatal]
  - Metastases to liver [Fatal]
  - Non-small cell lung cancer [Unknown]
  - Paraesthesia [Unknown]
  - Off label use [Unknown]

NARRATIVE: CASE EVENT DATE: 20240101
